FAERS Safety Report 9312245 (Version 1)
Quarter: 2013Q1

REPORT INFORMATION
  Report Type: Spontaneous
  Country: US (occurrence: None)
  Receive Date: 20130219
  Receipt Date: 20130219
  Transmission Date: 20140127
  Serious: Yes (Hospitalization)
  Sender: FDA-Public Use
  Company Number: DAV-AE-MTX-11-049

PATIENT
  Age: 65 Year
  Sex: Female
  Weight: 80 kg

DRUGS (10)
  1. METHOTREXATE (METHOTREXATE) OPEN LABEL [Suspect]
     Indication: RHEUMATOID ARTHRITIS
     Route: 048
     Dates: start: 20110414, end: 20110510
  2. HUMIRA (ADALIMUMAB) OPEN LABEL [Suspect]
     Indication: RHEUMATOID ARTHRITIS
     Dosage: 40 MG, 1 IN 2 WK
     Route: 058
     Dates: start: 20110412, end: 20110510
  3. ZOLPIDEM (ZOLPIDEM) [Concomitant]
  4. MIRTAZAPINE (MIRTAZAPINE) [Concomitant]
  5. SIMVASTATIN (SIMVASTATIN) [Concomitant]
  6. ACETYLSALICYLIC ACID (ACETYLSALICYLIC ACID) [Concomitant]
  7. OLMESARTAN (OLMESARTAN) [Concomitant]
  8. HYDROCHLOROTHIAZIDE (HYDROCHLOROTHIAZIDE) [Concomitant]
  9. CARVEDILOL (CARVEDILOL) [Concomitant]
  10. FOLIC ACID (FOLIC ACID) [Concomitant]

REACTIONS (5)
  - Deep vein thrombosis [None]
  - Pain in extremity [None]
  - Local swelling [None]
  - Arthralgia [None]
  - Decreased activity [None]
